FAERS Safety Report 17075800 (Version 4)
Quarter: 2020Q3

REPORT INFORMATION
  Report Type: Spontaneous
  Country: US (occurrence: US)
  Receive Date: 20191126
  Receipt Date: 20200811
  Transmission Date: 20201102
  Serious: Yes (Other)
  Sender: FDA-Public Use
  Company Number: US-PFIZER INC-2019511459

PATIENT
  Age: 79 Year
  Sex: Female

DRUGS (5)
  1. LETROZOLE. [Concomitant]
     Active Substance: LETROZOLE
     Dosage: UNK
  2. IBRANCE [Suspect]
     Active Substance: PALBOCICLIB
     Dosage: UNK, CYCLIC (29 DAYS WITH THE TREATMENT AND 11 DAYS OFF THE MEDICATION)
     Dates: start: 20200625
  3. ANASTRAZOLE DENK [Suspect]
     Active Substance: ANASTROZOLE
     Dosage: UNK
  4. ARIMIDEX [Concomitant]
     Active Substance: ANASTROZOLE
     Dosage: UNK
  5. IBRANCE [Suspect]
     Active Substance: PALBOCICLIB
     Indication: BREAST CANCER FEMALE
     Dosage: 125 MG
     Dates: start: 201910, end: 202004

REACTIONS (4)
  - Product use issue [Unknown]
  - Neutrophil count decreased [Unknown]
  - Off label use [Unknown]
  - Laboratory test abnormal [Unknown]
